FAERS Safety Report 6668860-1 (Version None)
Quarter: 2010Q2

REPORT INFORMATION
  Report Type: 
  Country: None (occurrence: None)
  Receive Date: 20100402
  Receipt Date: 20100323
  Transmission Date: 20101027
  Serious: Yes (Death, Hospitalization)
  Sender: FDA-Public Use
  Company Number: A-NJ2010-34157

PATIENT
  Age: 47 Year
  Sex: Male

DRUGS (4)
  1. TRACLEER [Suspect]
     Indication: PULMONARY ARTERIAL HYPERTENSION
     Dosage: 125 MG, BID, ORAL, 62.5 MG, BID ORAL
     Route: 048
     Dates: start: 20060301, end: 20060331
  2. TRACLEER [Suspect]
     Indication: PULMONARY ARTERIAL HYPERTENSION
     Dosage: 125 MG, BID, ORAL, 62.5 MG, BID ORAL
     Route: 048
     Dates: start: 20060401, end: 20100224
  3. REVATIO [Concomitant]
  4. REMODULIN [Concomitant]

REACTIONS (3)
  - DISEASE PROGRESSION [None]
  - GASTROINTESTINAL HAEMORRHAGE [None]
  - PULMONARY ARTERIAL HYPERTENSION [None]
